FAERS Safety Report 15628407 (Version 1)
Quarter: 2018Q4

REPORT INFORMATION
  Report Type: Spontaneous
  Country: US (occurrence: US)
  Receive Date: 20181116
  Receipt Date: 20181116
  Transmission Date: 20190205
  Serious: No
  Sender: FDA-Public Use
  Company Number: US-MYLANLABS-2018M1086907

PATIENT
  Sex: Female
  Weight: 82 kg

DRUGS (1)
  1. LIDOCAINE PATCH [Suspect]
     Active Substance: LIDOCAINE
     Indication: NECK PAIN
     Dosage: 5 %, UNK
     Route: 062

REACTIONS (3)
  - Product quality issue [Unknown]
  - Product adhesion issue [Unknown]
  - Off label use [Unknown]
